FAERS Safety Report 5553481-4 (Version None)
Quarter: 2007Q4

REPORT INFORMATION
  Report Type: 
  Country: None (occurrence: None)
  Receive Date: 20071213
  Receipt Date: 20071204
  Transmission Date: 20080405
  Serious: Yes (Hospitalization, Other)
  Sender: FDA-Public Use
  Company Number: US-NOVOPROD-269500

PATIENT
  Age: 14 Year
  Sex: Female
  Weight: 68.8 kg

DRUGS (6)
  1. NORDITROPIN NORDIFLEX [Suspect]
     Indication: BODY HEIGHT BELOW NORMAL
     Dosage: 3 MG, QD
     Route: 058
     Dates: start: 20060101
  2. LUVOX [Suspect]
     Dosage: 200 MG, UNK
     Dates: start: 20070901
  3. LUPRON [Concomitant]
     Indication: PRECOCIOUS PUBERTY
     Dates: end: 20060623
  4. PROZAC [Concomitant]
     Indication: STRESS
     Dates: start: 20070401
  5. LEVOXYL [Concomitant]
     Indication: THYROID DISORDER
     Dosage: 75 UG, UNK
  6. ATIVAN [Concomitant]
     Dosage: UNK, PRN
     Dates: start: 20070901

REACTIONS (5)
  - ASTHENIA [None]
  - BACK PAIN [None]
  - HEADACHE [None]
  - OEDEMA PERIPHERAL [None]
  - PARAESTHESIA [None]
